FAERS Safety Report 26135050 (Version 1)
Quarter: 2025Q4

REPORT INFORMATION
  Report Type: Spontaneous
  Country: US (occurrence: None)
  Receive Date: 20251208
  Receipt Date: 20251208
  Transmission Date: 20260118
  Serious: Yes (unspecified)
  Sender: FDA-CTU
  Company Number: None

PATIENT
  Age: 82 Year
  Sex: Female

DRUGS (3)
  1. EYLEA HD [Suspect]
     Active Substance: AFLIBERCEPT
     Indication: Age-related macular degeneration
     Dosage: 1 AN -AS NECCESARY 8-10 WEEKS INTRAVITREAL
     Route: 050
     Dates: start: 20241028, end: 20251117
  2. EYLEA [Concomitant]
     Active Substance: AFLIBERCEPT
     Dates: start: 20230127, end: 20240621
  3. AVASTIN [Concomitant]
     Active Substance: BEVACIZUMAB
     Dates: start: 20220606, end: 20221104

REACTIONS (5)
  - Vision blurred [None]
  - Vitreous floaters [None]
  - Eye pain [None]
  - Inflammation [None]
  - Visual field defect [None]

NARRATIVE: CASE EVENT DATE: 20251205
